FAERS Safety Report 11146254 (Version 1)
Quarter: 2015Q2

REPORT INFORMATION
  Report Type: Spontaneous
  Country: JP (occurrence: JP)
  Receive Date: 20150528
  Receipt Date: 20150528
  Transmission Date: 20150821
  Serious: Yes (Death)
  Sender: FDA-Public Use
  Company Number: JP-BAYER-2015-278369

PATIENT
  Age: 46 Year
  Sex: Male

DRUGS (1)
  1. STIVARGA [Suspect]
     Active Substance: REGORAFENIB
     Indication: COLORECTAL CANCER
     Dosage: 160 MG, QD
     Route: 048
     Dates: start: 20150224, end: 20150310

REACTIONS (2)
  - Liver function test abnormal [Recovering/Resolving]
  - Colorectal cancer [Fatal]

NARRATIVE: CASE EVENT DATE: 20150310
